FAERS Safety Report 6671073-0 (Version None)
Quarter: 2010Q2

REPORT INFORMATION
  Report Type: 
  Country: None (occurrence: None)
  Receive Date: 20100407
  Receipt Date: 20100401
  Transmission Date: 20101027
  Serious: Yes (Hospitalization)
  Sender: FDA-Public Use
  Company Number: FR-ASTRAZENECA-2010SE14628

PATIENT
  Age: 25602 Day
  Sex: Male

DRUGS (6)
  1. NEXIUM [Suspect]
     Route: 048
  2. CLOPIDOGREL EG [Suspect]
     Route: 048
     Dates: start: 20091201, end: 20100201
  3. CRESTOR [Concomitant]
     Route: 048
  4. OLMESARTAN MEDOXOMIL [Concomitant]
  5. VASTAREL [Concomitant]
  6. KARDEGIC [Concomitant]

REACTIONS (3)
  - DRUG INEFFECTIVE [None]
  - HEMIPLEGIA [None]
  - ISCHAEMIC STROKE [None]
